FAERS Safety Report 20012114 (Version 1)
Quarter: 2021Q4

REPORT INFORMATION
  Report Type: Spontaneous
  Country: US (occurrence: US)
  Receive Date: 20211029
  Receipt Date: 20211029
  Transmission Date: 20220303
  Serious: Yes (Other)
  Sender: FDA-Public Use
  Company Number: 2021A720969

PATIENT
  Age: 9565 Day
  Sex: Male
  Weight: 164.2 kg

DRUGS (1)
  1. BYDUREON BCISE [Suspect]
     Active Substance: EXENATIDE
     Indication: Type 2 diabetes mellitus
     Route: 058
     Dates: start: 20210720

REACTIONS (4)
  - Drug dose omission by device [Recovered/Resolved with Sequelae]
  - Diabetic ketoacidosis [Unknown]
  - Device defective [Unknown]
  - Blood glucose increased [Unknown]

NARRATIVE: CASE EVENT DATE: 20210828
